FAERS Safety Report 9486170 (Version 1)
Quarter: 2013Q3

REPORT INFORMATION
  Report Type: Spontaneous
  Country: US (occurrence: US)
  Receive Date: 20130829
  Receipt Date: 20130829
  Transmission Date: 20140515
  Serious: No
  Sender: FDA-Public Use
  Company Number: US-GLAXOSMITHKLINE-A1005899A

PATIENT
  Age: 43 Year
  Sex: Female

DRUGS (3)
  1. MALARONE [Suspect]
     Indication: MALARIA PROPHYLAXIS
     Dosage: 1TAB PER DAY
     Route: 048
     Dates: start: 20121209
  2. CIPRO [Concomitant]
  3. BENZACLIN [Concomitant]

REACTIONS (2)
  - Drug dispensing error [Unknown]
  - Drug administration error [Unknown]
